FAERS Safety Report 12568975 (Version 1)
Quarter: 2016Q3

REPORT INFORMATION
  Report Type: Report from Study
  Country: US (occurrence: US)
  Receive Date: 20160719
  Receipt Date: 20160719
  Transmission Date: 20161109
  Serious: Yes (Other)
  Sender: FDA-Public Use
  Company Number: US-ROCHE-1376857

PATIENT

DRUGS (1)
  1. PERTUZUMAB [Suspect]
     Active Substance: PERTUZUMAB
     Indication: RECTAL ADENOCARCINOMA
     Dosage: CYCLE: 21 DAYS?OVER 60 MIN ON DAY 1
     Route: 042

REACTIONS (4)
  - Stomatitis [Unknown]
  - Dermatitis acneiform [Unknown]
  - Hypophosphataemia [Unknown]
  - Pain of skin [Unknown]
